FAERS Safety Report 17810195 (Version 5)
Quarter: 2020Q3

REPORT INFORMATION
  Report Type: Report from Study
  Country: US (occurrence: US)
  Receive Date: 20200521
  Receipt Date: 20200817
  Transmission Date: 20201102
  Serious: No
  Sender: FDA-Public Use
  Company Number: NVSC2020US137192

PATIENT
  Sex: Male

DRUGS (1)
  1. ZOLGENSMA [Suspect]
     Active Substance: ONASEMNOGENE ABEPARVOVEC-XIOI
     Indication: SPINAL MUSCULAR ATROPHY
     Dosage: UNK, ONCE/SINGLE
     Route: 042
     Dates: start: 20200511, end: 20200511

REACTIONS (7)
  - Gastrooesophageal reflux disease [Unknown]
  - Rash [Unknown]
  - Frequent bowel movements [Unknown]
  - Platelet count increased [Unknown]
  - Cardiac index decreased [Unknown]
  - Vitamin D decreased [Unknown]
  - Feeling abnormal [Recovering/Resolving]
